FAERS Safety Report 9049702 (Version 1)
Quarter: 2013Q1

REPORT INFORMATION
  Report Type: Spontaneous
  Country: US (occurrence: US)
  Receive Date: 20130205
  Receipt Date: 20130205
  Transmission Date: 20140127
  Serious: No
  Sender: FDA-Public Use
  Company Number: US-TEVA-384249USA

PATIENT
  Sex: Male

DRUGS (2)
  1. PROAIR HFA [Suspect]
     Indication: ASTHMA
  2. QNASL [Concomitant]
     Indication: NASAL CONGESTION

REACTIONS (2)
  - Wheezing [Unknown]
  - Asthma [Unknown]
